FAERS Safety Report 8604842-8 (Version None)
Quarter: 2012Q3

REPORT INFORMATION
  Report Type: 
  Country: None (occurrence: None)
  Receive Date: 20120820
  Receipt Date: 20120809
  Transmission Date: 20120928
  Serious: No
  Sender: FDA-Public Use
  Company Number: US-B.I. PHARMACEUTICALS,INC./RIDGEFIELD-2012-BP-15898BP

PATIENT
  Age: 78 Year
  Sex: Female
  Weight: 98.5 kg

DRUGS (7)
  1. HUMALOG [Concomitant]
  2. LEVOTHYROXINE SODIUM [Concomitant]
  3. TRADJENTA [Suspect]
     Indication: TYPE 2 DIABETES MELLITUS
     Dosage: 5 MG
     Route: 048
     Dates: start: 20120321, end: 20120619
  4. LANTUS [Concomitant]
  5. NORVASC [Concomitant]
  6. INSULIN [Concomitant]
     Indication: TYPE 2 DIABETES MELLITUS
     Dates: start: 20040101
  7. LIPITOR [Concomitant]

REACTIONS (1)
  - RENAL IMPAIRMENT [None]
